FAERS Safety Report 4328879-2 (Version None)
Quarter: 2004Q2

REPORT INFORMATION
  Report Type: 
  Country: None (occurrence: None)
  Receive Date: 20040401
  Receipt Date: 20040210
  Transmission Date: 20050107
  Serious: Yes (Death, Life-Threatening)
  Sender: FDA-Public Use
  Company Number: 200410324JP

PATIENT
  Age: 68 Year
  Sex: Male
  Weight: 60 kg

DRUGS (8)
  1. ARAVA [Suspect]
     Indication: RHEUMATOID ARTHRITIS
     Route: 048
     Dates: start: 20031203, end: 20040202
  2. AZULFIDINE [Concomitant]
     Indication: MUSCULOSKELETAL PAIN
     Route: 048
     Dates: start: 20031113, end: 20031202
  3. PREDONINE [Concomitant]
     Indication: INFLAMMATION
     Route: 048
     Dates: start: 20031113
  4. ULGUT [Concomitant]
     Indication: PROPHYLAXIS
     Route: 048
     Dates: start: 20031113
  5. MARZULENE S [Concomitant]
     Indication: PROPHYLAXIS
     Route: 048
     Dates: start: 20031113
  6. LENDORM [Concomitant]
     Indication: INSOMNIA
     Route: 048
     Dates: start: 20031113
  7. KETOPROFEN [Concomitant]
     Indication: ARTHRALGIA
     Dates: start: 20031113
  8. VOLTAREN SUPPOSITORIEN [Concomitant]
     Indication: ARTHRALGIA
     Dates: start: 20031113

REACTIONS (5)
  - CONDITION AGGRAVATED [None]
  - HYPERTHERMIA [None]
  - INTERSTITIAL LUNG DISEASE [None]
  - PNEUMONIA [None]
  - RESPIRATORY DISTRESS [None]
